FAERS Safety Report 5917442-5 (Version None)
Quarter: 2008Q4

REPORT INFORMATION
  Report Type: 
  Country: None (occurrence: None)
  Receive Date: 20081009
  Receipt Date: 20081009
  Transmission Date: 20090506
  Serious: Yes (Hospitalization)
  Sender: FDA-Public Use
  Company Number: None

PATIENT
  Age: 43 Year
  Sex: Male
  Weight: 69 kg

DRUGS (3)
  1. BEVACIZUMAB  10MG/KG  GENENTECH [Suspect]
     Indication: PANCREATIC CARCINOMA METASTATIC
     Dosage: 720 MG Q2WKS  IV
     Route: 042
     Dates: start: 20080531, end: 20080814
  2. GEMCITABINE [Concomitant]
  3. TAXOTERE [Concomitant]

REACTIONS (1)
  - PANCREATITIS [None]
